FAERS Safety Report 7076281-5 (Version None)
Quarter: 2010Q4

REPORT INFORMATION
  Report Type: 
  Country: None (occurrence: None)
  Receive Date: 20101101
  Receipt Date: 20101018
  Transmission Date: 20110411
  Serious: Yes (Death)
  Sender: FDA-Public Use
  Company Number: GB-RANBAXY-2010R1-38350

PATIENT

DRUGS (9)
  1. ACYCLOVIR [Suspect]
     Indication: HERPES ZOSTER
     Dosage: UNK
     Route: 048
     Dates: start: 20100905, end: 20100909
  2. ALENDRONIC ACID [Concomitant]
     Dosage: 70 MG, 1/WEEK
     Route: 065
  3. AMLODIPINE [Concomitant]
     Dosage: 5 MG, UNK
     Route: 065
  4. AZATHIOPRINE [Concomitant]
     Dosage: 75 MG, UNK
     Route: 065
  5. CALCICHEW D3 [Concomitant]
     Dosage: UNK
     Route: 065
  6. MESALAZINE [Concomitant]
     Dosage: 2.4 G, BID
     Route: 065
  7. OMEPRAZOLE [Concomitant]
     Dosage: 20 MG, UNK
     Route: 065
  8. PREDNISOLONE [Concomitant]
     Dosage: 10 MG, UNK
     Route: 065
  9. SIMVASTATIN [Concomitant]
     Dosage: 40 MG, UNK
     Route: 065

REACTIONS (6)
  - ABDOMINAL PAIN [None]
  - BLOOD CREATININE INCREASED [None]
  - DIARRHOEA [None]
  - INTESTINAL PERFORATION [None]
  - RENAL FAILURE ACUTE [None]
  - VOMITING [None]
